FAERS Safety Report 17253004 (Version 2)
Quarter: 2021Q1

REPORT INFORMATION
  Report Type: Spontaneous
  Country: US (occurrence: US)
  Receive Date: 20200109
  Receipt Date: 20210114
  Transmission Date: 20210419
  Serious: No
  Sender: FDA-Public Use
  Company Number: US-ABBVIE-19K-163-2875935-00

PATIENT
  Age: 81 Year
  Sex: Male

DRUGS (3)
  1. DUOPA [Suspect]
     Active Substance: CARBIDOPA\LEVODOPA
     Route: 050
     Dates: start: 201907
  2. DUOPA [Suspect]
     Active Substance: CARBIDOPA\LEVODOPA
     Route: 050
  3. DUOPA [Suspect]
     Active Substance: CARBIDOPA\LEVODOPA
     Indication: PRODUCT USED FOR UNKNOWN INDICATION
     Route: 050
     Dates: end: 201906

REACTIONS (9)
  - Product administered at inappropriate site [Unknown]
  - Wrong technique in product usage process [Unknown]
  - Device breakage [Unknown]
  - Device connection issue [Unknown]
  - Device issue [Unknown]
  - Drooling [Recovered/Resolved]
  - Gait disturbance [Recovered/Resolved]
  - Device occlusion [Unknown]
  - Hallucination [Recovered/Resolved]

NARRATIVE: CASE EVENT DATE: 201906
